FAERS Safety Report 19605648 (Version 1)
Quarter: 2021Q3

REPORT INFORMATION
  Report Type: Report from Study
  Country: CA (occurrence: CA)
  Receive Date: 20210723
  Receipt Date: 20210723
  Transmission Date: 20211014
  Serious: Yes (Hospitalization, Other)
  Sender: FDA-Public Use
  Company Number: CA-BAUSCH-BL-2021-025016

PATIENT
  Age: 61 Year
  Sex: Female
  Weight: 70 kg

DRUGS (21)
  1. DEXTROMETHORPHAN [Suspect]
     Active Substance: DEXTROMETHORPHAN
     Indication: PRODUCT USED FOR UNKNOWN INDICATION
     Route: 065
  2. LETROZOLE. [Suspect]
     Active Substance: LETROZOLE
     Indication: PRODUCT USED FOR UNKNOWN INDICATION
     Route: 065
  3. TYLENOL [Suspect]
     Active Substance: ACETAMINOPHEN
     Indication: PRODUCT USED FOR UNKNOWN INDICATION
     Route: 065
  4. HYDROMORPHONE HYDROCHLORIDE. [Suspect]
     Active Substance: HYDROMORPHONE HYDROCHLORIDE
     Indication: PRODUCT USED FOR UNKNOWN INDICATION
     Route: 065
  5. ATROVENT [Suspect]
     Active Substance: IPRATROPIUM BROMIDE
     Indication: PRODUCT USED FOR UNKNOWN INDICATION
     Route: 065
  6. MOXIFLOXACIN HYDROCHLORIDE. [Suspect]
     Active Substance: MOXIFLOXACIN HYDROCHLORIDE
     Indication: ANTIBIOTIC THERAPY
     Route: 065
  7. PULMICORT TURBUHALER [Suspect]
     Active Substance: BUDESONIDE
     Indication: PRODUCT USED FOR UNKNOWN INDICATION
     Route: 065
  8. TRELEGY ELLIPTA [Suspect]
     Active Substance: FLUTICASONE FUROATE\UMECLIDINIUM BROMIDE\VILANTEROL TRIFENATATE
     Indication: PRODUCT USED FOR UNKNOWN INDICATION
     Route: 055
  9. OMEPRAZOLE. [Suspect]
     Active Substance: OMEPRAZOLE
     Indication: PRODUCT USED FOR UNKNOWN INDICATION
     Route: 065
  10. THEOPHYLLINE [Suspect]
     Active Substance: THEOPHYLLINE ANHYDROUS
     Indication: PRODUCT USED FOR UNKNOWN INDICATION
     Route: 065
  11. SALBUTAMOL [Suspect]
     Active Substance: ALBUTEROL
     Indication: ASTHMA
     Route: 065
  12. CLONAZEPAM. [Suspect]
     Active Substance: CLONAZEPAM
     Indication: PRODUCT USED FOR UNKNOWN INDICATION
     Route: 065
  13. ERGOCALCIFEROL. [Suspect]
     Active Substance: ERGOCALCIFEROL
     Indication: PRODUCT USED FOR UNKNOWN INDICATION
     Route: 065
  14. ARNUITY ELLIPTA [Suspect]
     Active Substance: FLUTICASONE FUROATE
     Indication: PRODUCT USED FOR UNKNOWN INDICATION
     Route: 065
  15. IPRATROPIUM;SALBUTAMOL [Suspect]
     Active Substance: ALBUTEROL\IPRATROPIUM
     Indication: PRODUCT USED FOR UNKNOWN INDICATION
     Route: 065
  16. PREDNISONE. [Suspect]
     Active Substance: PREDNISONE
     Indication: SINUS DISORDER
     Route: 065
  17. SERTRALINE HYDROCHLORIDE. [Suspect]
     Active Substance: SERTRALINE HYDROCHLORIDE
     Indication: PRODUCT USED FOR UNKNOWN INDICATION
     Route: 065
  18. ACETYLCHOLINE CHLORIDE [Suspect]
     Active Substance: ACETYLCHOLINE CHLORIDE
     Indication: PRODUCT USED FOR UNKNOWN INDICATION
     Route: 065
  19. MOMETASONE [Suspect]
     Active Substance: MOMETASONE
     Indication: PRODUCT USED FOR UNKNOWN INDICATION
     Route: 065
  20. UMECLIDINIUM BROMIDE;VILANTEROL TRIFENATATE [Suspect]
     Active Substance: UMECLIDINIUM BROMIDE\VILANTEROL TRIFENATATE
     Indication: PRODUCT USED FOR UNKNOWN INDICATION
     Route: 065
  21. ATIVAN [Suspect]
     Active Substance: LORAZEPAM
     Indication: PRODUCT USED FOR UNKNOWN INDICATION
     Route: 065

REACTIONS (28)
  - Chest discomfort [Recovered/Resolved]
  - Eosinophilia [Recovered/Resolved]
  - Loss of personal independence in daily activities [Recovered/Resolved]
  - Mental impairment [Recovered/Resolved]
  - Rhinorrhoea [Recovered/Resolved]
  - Sleep disorder due to a general medical condition [Recovered/Resolved]
  - Depression [Recovered/Resolved]
  - Cough [Recovered/Resolved]
  - Dyspnoea [Recovered/Resolved]
  - Obstruction [Recovered/Resolved]
  - Sinusitis [Recovered/Resolved]
  - Anxiety [Recovered/Resolved]
  - Therapeutic product effect incomplete [Recovered/Resolved]
  - Productive cough [Recovered/Resolved]
  - Respiratory disorder [Recovered/Resolved]
  - Wheezing [Recovered/Resolved]
  - Malaise [Recovered/Resolved]
  - Nasal congestion [Recovered/Resolved]
  - Sleep disorder [Recovered/Resolved]
  - Breast cancer [Recovered/Resolved]
  - Chronic obstructive pulmonary disease [Recovered/Resolved]
  - Mental disorder [Recovered/Resolved]
  - Sinus disorder [Recovered/Resolved]
  - Blood count abnormal [Recovered/Resolved]
  - Hypertension [Recovered/Resolved]
  - Pneumonia [Recovered/Resolved]
  - Tremor [Recovered/Resolved]
  - Asthma [Recovered/Resolved]
